FAERS Safety Report 17926874 (Version 1)
Quarter: 2020Q2

REPORT INFORMATION
  Report Type: Other
  Country: US (occurrence: US)
  Receive Date: 20200623
  Receipt Date: 20200623
  Transmission Date: 20200714
  Serious: No
  Sender: FDA-Public Use
  Company Number: US-BIOVITRUM-2019US1110

PATIENT
  Age: 72 Year
  Sex: Female

DRUGS (7)
  1. PREDNISONE. [Concomitant]
     Active Substance: PREDNISONE
  2. IRON [Concomitant]
     Active Substance: IRON
  3. KINERET [Suspect]
     Active Substance: ANAKINRA
     Indication: RHEUMATOID ARTHRITIS
  4. IBUPROFEN. [Concomitant]
     Active Substance: IBUPROFEN
  5. MORPHINE [Concomitant]
     Active Substance: MORPHINE
  6. KINERET [Suspect]
     Active Substance: ANAKINRA
     Indication: ANKYLOSING SPONDYLITIS
     Route: 058
     Dates: start: 20190501
  7. CALCIUM [Concomitant]
     Active Substance: CALCIUM

REACTIONS (5)
  - Injection site pain [Unknown]
  - Pain in extremity [Unknown]
  - Off label use [Not Recovered/Not Resolved]
  - Hypertension [Unknown]
  - Tendonitis [Unknown]

NARRATIVE: CASE EVENT DATE: 20190524
